FAERS Safety Report 5456766-5 (Version None)
Quarter: 2007Q3

REPORT INFORMATION
  Report Type: 
  Country: None (occurrence: None)
  Receive Date: 20070918
  Receipt Date: 20070906
  Transmission Date: 20080115
  Serious: Yes (Other)
  Sender: FDA-Public Use
  Company Number: GB-PFIZER INC-2007075256

PATIENT
  Age: 69 Year
  Sex: Female

DRUGS (6)
  1. CHAMPIX [Suspect]
     Indication: SMOKING CESSATION THERAPY
     Route: 048
     Dates: start: 20070728, end: 20070814
  2. CITALOPRAM [Concomitant]
  3. CO-CODAMOL [Concomitant]
  4. DILTIAZEM HYDROCHLORIDE [Concomitant]
  5. PREDNISOLONE [Concomitant]
  6. ALBUTEROL [Concomitant]

REACTIONS (1)
  - RESPIRATORY DISTRESS [None]
